FAERS Safety Report 18570000 (Version 2)
Quarter: 2021Q1

REPORT INFORMATION
  Report Type: Spontaneous
  Country: US (occurrence: US)
  Receive Date: 20201202
  Receipt Date: 20210311
  Transmission Date: 20210419
  Serious: No
  Sender: FDA-Public Use
  Company Number: US-DECIPHERA PHARMACEUTICALS LLC-2020-US-000645

PATIENT
  Sex: Female

DRUGS (1)
  1. QINLOCK [Suspect]
     Active Substance: RIPRETINIB
     Indication: GASTROINTESTINAL STROMAL TUMOUR
     Dosage: 150 MILLIGRAM, QD
     Route: 048
     Dates: start: 20201001

REACTIONS (8)
  - Dry mouth [Unknown]
  - Dry throat [Unknown]
  - Wound [Unknown]
  - Pruritus [Unknown]
  - Pain in extremity [Unknown]
  - Blood pressure increased [Unknown]
  - Constipation [Unknown]
  - Dry skin [Unknown]
